FAERS Safety Report 9146898 (Version 1)
Quarter: 2013Q1

REPORT INFORMATION
  Report Type: Spontaneous
  Country: PL (occurrence: PL)
  Receive Date: 20130307
  Receipt Date: 20130307
  Transmission Date: 20140127
  Serious: Yes (Other)
  Sender: FDA-Public Use
  Company Number: PL-ROCHE-1198331

PATIENT
  Age: 57 Year
  Sex: 0

DRUGS (3)
  1. HERCEPTIN [Suspect]
     Indication: BREAST CANCER
     Route: 065
     Dates: start: 20080612
  2. VINORELBINE [Suspect]
     Indication: PRODUCT USED FOR UNKNOWN INDICATION
     Route: 065
  3. DOCETAXEL [Concomitant]
     Route: 065
     Dates: start: 20080612

REACTIONS (4)
  - Metastases to bone [Unknown]
  - Metastases to central nervous system [Unknown]
  - Convulsion [Unknown]
  - Neuropathy peripheral [Unknown]
